FAERS Safety Report 8183872-7 (Version None)
Quarter: 2012Q1

REPORT INFORMATION
  Report Type: 
  Country: None (occurrence: None)
  Receive Date: 20120203
  Receipt Date: 20111205
  Transmission Date: 20120608
  Serious: No
  Sender: FDA-Public Use
  Company Number: 2011000191

PATIENT
  Age: 14 Year
  Sex: Female

DRUGS (3)
  1. CONCERTA [Concomitant]
  2. ULESFIA [Suspect]
  3. RITALIN [Concomitant]

REACTIONS (2)
  - MEDICATION ERROR [None]
  - ALOPECIA [None]
